FAERS Safety Report 25952332 (Version 2)
Quarter: 2025Q4

REPORT INFORMATION
  Report Type: Report from Study
  Country: AE (occurrence: AE)
  Receive Date: 20251023
  Receipt Date: 20251027
  Transmission Date: 20260118
  Serious: Yes (Death)
  Sender: KARYOPHARM THERAPEUTICS
  Company Number: AE-KARYOPHARM-2025KPT100853

PATIENT
  Age: 80 Year
  Sex: Male

DRUGS (1)
  1. SELINEXOR [Suspect]
     Active Substance: SELINEXOR
     Indication: Plasma cell myeloma
     Dosage: 100 MG 1/WEEK
     Route: 048
     Dates: start: 20250705, end: 20250903

REACTIONS (1)
  - General physical health deterioration [Fatal]
